FAERS Safety Report 6615509-X (Version None)
Quarter: 2010Q1

REPORT INFORMATION
  Report Type: 
  Country: None (occurrence: None)
  Receive Date: 20100305
  Receipt Date: 20100225
  Transmission Date: 20100710
  Serious: Yes (Hospitalization, Other)
  Sender: FDA-Public Use
  Company Number: JP-BAYER-200910840BYL

PATIENT
  Age: 75 Year
  Sex: Male
  Weight: 64 kg

DRUGS (24)
  1. NEXAVAR [Suspect]
     Indication: RENAL CELL CARCINOMA
     Dosage: TOTAL DAILY DOSE: 400 MG  UNIT DOSE: 200 MG
     Route: 048
     Dates: start: 20090302
  2. NEXAVAR [Suspect]
     Dosage: TOTAL DAILY DOSE: 400 MG  UNIT DOSE: 200 MG
     Route: 048
     Dates: start: 20090319, end: 20090610
  3. NEXAVAR [Suspect]
     Dosage: TOTAL DAILY DOSE: 400 MG  UNIT DOSE: 200 MG
     Route: 048
     Dates: start: 20091106, end: 20091209
  4. TOPSYM [Concomitant]
     Route: 061
     Dates: start: 20070620, end: 20090317
  5. MAGMITT [Concomitant]
     Route: 048
     Dates: start: 20090622, end: 20091209
  6. MAGMITT [Concomitant]
     Route: 048
     Dates: start: 20090304, end: 20090311
  7. KERATINAMIN [Concomitant]
     Route: 061
     Dates: start: 20090302, end: 20090506
  8. LENDORMIN D [Concomitant]
     Route: 048
     Dates: start: 20090307, end: 20090307
  9. MYSER:CREAM [Concomitant]
     Route: 061
     Dates: start: 20070620, end: 20090317
  10. EURAX [Concomitant]
     Route: 061
     Dates: start: 20070620, end: 20090317
  11. SELBEX [Concomitant]
     Route: 048
     Dates: start: 20090319, end: 20090702
  12. PROPETO [Concomitant]
     Dosage: AS NEEDED
     Route: 031
     Dates: start: 20090326, end: 20090702
  13. ZENASPIRIN [Concomitant]
     Route: 048
     Dates: start: 20090622
  14. ZENASPIRIN [Concomitant]
     Route: 048
     Dates: end: 20090611
  15. GASTER D [Concomitant]
     Route: 048
     Dates: start: 20090622, end: 20091209
  16. GASTER D [Concomitant]
     Route: 048
     Dates: end: 20090611
  17. ZETIA [Concomitant]
     Route: 048
     Dates: end: 20090611
  18. ZETIA [Concomitant]
     Route: 048
     Dates: start: 20090622, end: 20091209
  19. ALLOZYM [Concomitant]
     Route: 048
     Dates: end: 20090611
  20. ALLOZYM [Concomitant]
     Route: 048
     Dates: start: 20090622, end: 20091209
  21. MAGNESIUM OXIDE [Concomitant]
     Route: 048
     Dates: end: 20090611
  22. AMOBAN [Concomitant]
     Route: 048
     Dates: end: 20090611
  23. AMOBAN [Concomitant]
     Route: 048
     Dates: start: 20090622
  24. PARIET [Concomitant]
     Route: 048
     Dates: start: 20090703, end: 20090806

REACTIONS (6)
  - ALOPECIA [None]
  - CHOLECYSTITIS [None]
  - HEPATIC FUNCTION ABNORMAL [None]
  - HYPERTENSION [None]
  - PALMAR-PLANTAR ERYTHRODYSAESTHESIA SYNDROME [None]
  - RASH [None]
